FAERS Safety Report 5803403-3 (Version None)
Quarter: 2008Q3

REPORT INFORMATION
  Report Type: 
  Country: None (occurrence: None)
  Receive Date: 20080708
  Receipt Date: 20080702
  Transmission Date: 20090109
  Serious: Yes (Death, Other)
  Sender: FDA-Public Use
  Company Number: DE-AVENTIS-200811554DE

PATIENT
  Age: 71 Year
  Sex: Male
  Weight: 72 kg

DRUGS (4)
  1. TAXOTERE [Suspect]
     Route: 041
     Dates: start: 20080108, end: 20080422
  2. PREDNISOLONE [Concomitant]
     Route: 048
  3. PREDNISOLONE [Concomitant]
     Indication: PROSTATE CANCER
     Route: 048
  4. NEUPOGEN [Concomitant]
     Indication: LEUKOPENIA
     Dosage: DOSE: NOT REPORTED
     Dates: start: 20080401

REACTIONS (2)
  - LEUKOCYTOSIS [None]
  - PULMONARY EMBOLISM [None]
